FAERS Safety Report 6699409-5 (Version None)
Quarter: 2010Q2

REPORT INFORMATION
  Report Type: 
  Country: None (occurrence: None)
  Receive Date: 20100426
  Receipt Date: 20100413
  Transmission Date: 20101027
  Serious: Yes (Other)
  Sender: FDA-Public Use
  Company Number: 7001392

PATIENT
  Age: 27 Year
  Sex: Female
  Weight: 68 kg

DRUGS (3)
  1. REBIF [Suspect]
     Indication: MULTIPLE SCLEROSIS
     Dosage: 44 MCG, 3 IN 1 WK, SUBCUTANEOUS
     Route: 058
     Dates: start: 20071010
  2. TOPAMAX [Concomitant]
  3. IBUOROFEN (IBUPROFEN) [Concomitant]

REACTIONS (9)
  - ANXIETY [None]
  - ARNOLD-CHIARI MALFORMATION [None]
  - FUNGAL INFECTION [None]
  - GENITAL BURNING SENSATION [None]
  - INFECTION [None]
  - PAIN OF SKIN [None]
  - REFUSAL OF TREATMENT BY PATIENT [None]
  - TENDONITIS [None]
  - TOOTH INFECTION [None]
